FAERS Safety Report 7220857-9 (Version None)
Quarter: 2011Q1

REPORT INFORMATION
  Report Type: 
  Country: None (occurrence: None)
  Receive Date: 20110112
  Receipt Date: 20110111
  Transmission Date: 20110831
  Serious: Yes (Other)
  Sender: FDA-Public Use
  Company Number: US-JNJFOC-20101208821

PATIENT
  Sex: Female
  Weight: 136.08 kg

DRUGS (8)
  1. NAPROXEN [Concomitant]
     Indication: ANTIINFLAMMATORY THERAPY
     Route: 048
  2. CYMBALTA [Concomitant]
     Indication: DEPRESSION
     Route: 048
  3. NEURONTIN [Concomitant]
     Indication: FIBROMYALGIA
     Dosage: 10-500 MG
     Route: 048
  4. PROMETHAZINE [Concomitant]
     Indication: NAUSEA
     Route: 048
  5. LORTAB [Concomitant]
     Indication: PAIN
     Dosage: 10-500 MG
     Route: 048
  6. LEVAQUIN [Suspect]
     Indication: ABSCESS
     Route: 048
  7. SIMPONI [Concomitant]
     Indication: ANKYLOSING SPONDYLITIS
     Route: 058
  8. CYMBALTA [Concomitant]
     Indication: FIBROMYALGIA
     Route: 048

REACTIONS (6)
  - ARTHROPATHY [None]
  - JOINT STIFFNESS [None]
  - BACK PAIN [None]
  - MUSCULOSKELETAL STIFFNESS [None]
  - HYPOKINESIA [None]
  - ABSCESS LIMB [None]
